FAERS Safety Report 9269574 (Version 2)
Quarter: 2013Q2

REPORT INFORMATION
  Report Type: Spontaneous
  Country: US (occurrence: US)
  Receive Date: 20130503
  Receipt Date: 20130614
  Transmission Date: 20140414
  Serious: Yes (Hospitalization)
  Sender: FDA-Public Use
  Company Number: US-BAYER-2013-052349

PATIENT
  Age: 52 Year
  Sex: Female
  Weight: 73.02 kg

DRUGS (11)
  1. YASMIN [Suspect]
     Indication: CONTRACEPTION
     Dosage: UNK
  2. ASPIRIN [Concomitant]
  3. ALBUTEROL [Concomitant]
  4. PROTONIX [Concomitant]
  5. SINGULAIR [Concomitant]
  6. PATANOL [Concomitant]
  7. MAXAIR [Concomitant]
  8. FLONASE [Concomitant]
  9. TAGAMET [Concomitant]
     Dosage: OVER THE COUNTER
     Dates: start: 20050802
  10. ULTRAM [Concomitant]
     Dosage: 50 MG, TID
  11. NAPROXEN [Concomitant]

REACTIONS (1)
  - Deep vein thrombosis [None]
